FAERS Safety Report 18342089 (Version 1)
Quarter: 2020Q4

REPORT INFORMATION
  Report Type: Spontaneous
  Country: JP (occurrence: JP)
  Receive Date: 20201005
  Receipt Date: 20201005
  Transmission Date: 20210113
  Serious: Yes (Death, Other)
  Sender: FDA-Public Use
  Company Number: JP-TEVA-2020-JP-006161J

PATIENT
  Age: 97 Year
  Sex: Female

DRUGS (2)
  1. SPIRONOLACTONE TABLET 25MG ^TEVA^ [Suspect]
     Active Substance: SPIRONOLACTONE
     Indication: PRODUCT USED FOR UNKNOWN INDICATION
     Route: 048
  2. ELIQUIS [Concomitant]
     Active Substance: APIXABAN
     Route: 048

REACTIONS (5)
  - Mouth breathing [Unknown]
  - Loss of consciousness [Unknown]
  - Dyspnoea [Unknown]
  - Pallor [Unknown]
  - Dehydration [Fatal]
